FAERS Safety Report 5220812-4 (Version None)
Quarter: 2007Q1

REPORT INFORMATION
  Report Type: 
  Country: None (occurrence: None)
  Receive Date: 20070123
  Receipt Date: 20070116
  Transmission Date: 20070707
  Serious: Yes (Death)
  Sender: FDA-Public Use
  Company Number: 235160

PATIENT
  Age: 65 Year
  Sex: Male

DRUGS (4)
  1. ACTIVASE [Suspect]
     Indication: THROMBOSIS
     Dosage: 100 MG, SINGLE, INTRAVENOUS
     Route: 042
     Dates: start: 20070109, end: 20070109
  2. ASPIRIN [Concomitant]
  3. CLOPIDOGREL [Concomitant]
  4. HEPARIN [Concomitant]

REACTIONS (1)
  - DRUG INEFFECTIVE [None]
